FAERS Safety Report 12376758 (Version 2)
Quarter: 2016Q2

REPORT INFORMATION
  Report Type: Report from Study
  Country: PR (occurrence: PR)
  Receive Date: 20160517
  Receipt Date: 20160517
  Transmission Date: 20160815
  Serious: No
  Sender: FDA-Public Use
  Company Number: PR-MALLINCKRODT-T201503059

PATIENT
  Age: 65 Year
  Sex: Male

DRUGS (3)
  1. REPOSITORY CORTICOTROPIN INJECTION [Suspect]
     Active Substance: CORTICOTROPIN
     Indication: PROTEINURIA
     Dosage: 40 UNITS TWICE PER WEEK
     Route: 030
     Dates: start: 2015, end: 2015
  2. REPOSITORY CORTICOTROPIN INJECTION [Suspect]
     Active Substance: CORTICOTROPIN
     Dosage: 80 UNITS, TWICE PER WEEK
     Route: 030
     Dates: start: 2015
  3. REPOSITORY CORTICOTROPIN INJECTION [Suspect]
     Active Substance: CORTICOTROPIN
     Indication: NEPHROTIC SYNDROME
     Dosage: 80 UNITS, TWICE PER WEEK
     Route: 030
     Dates: start: 20141219, end: 2015

REACTIONS (7)
  - Sciatica [Recovering/Resolving]
  - Haemoglobin decreased [Unknown]
  - Pain in extremity [Recovering/Resolving]
  - Increased appetite [Unknown]
  - Blood glucose increased [Unknown]
  - Blood pressure increased [Recovered/Resolved]
  - Fatigue [Not Recovered/Not Resolved]

NARRATIVE: CASE EVENT DATE: 20150914
